FAERS Safety Report 17161951 (Version 1)
Quarter: 2019Q4

REPORT INFORMATION
  Report Type: Spontaneous
  Country: BR (occurrence: BR)
  Receive Date: 20191217
  Receipt Date: 20191217
  Transmission Date: 20200122
  Serious: No
  Sender: FDA-Public Use
  Company Number: BR-ALKEM LABORATORIES LIMITED-BR-ALKEM-2018-09685

PATIENT

DRUGS (1)
  1. OLANZAPINE. [Suspect]
     Active Substance: OLANZAPINE
     Indication: PRODUCT USED FOR UNKNOWN INDICATION
     Dosage: 10-15 MG/DAY
     Route: 065

REACTIONS (1)
  - Salivary hypersecretion [Unknown]
